FAERS Safety Report 5729477-6 (Version None)
Quarter: 2008Q2

REPORT INFORMATION
  Report Type: 
  Country: None (occurrence: None)
  Receive Date: 20080506
  Receipt Date: 20080428
  Transmission Date: 20081010
  Serious: Yes (Hospitalization)
  Sender: FDA-Public Use
  Company Number: US-AMGEN-QUU276718

PATIENT
  Sex: Male

DRUGS (2)
  1. ENBREL [Suspect]
     Indication: PSORIATIC ARTHROPATHY
     Route: 058
     Dates: start: 20050120, end: 20080329
  2. ENBREL [Suspect]
     Indication: PSORIASIS

REACTIONS (8)
  - CARDIAC FAILURE CONGESTIVE [None]
  - HEADACHE [None]
  - HYPOAESTHESIA [None]
  - MYOCARDIAL INFARCTION [None]
  - NIGHT SWEATS [None]
  - PARAESTHESIA [None]
  - PERICARDIAL DRAINAGE [None]
  - PYREXIA [None]
